FAERS Safety Report 10543297 (Version 1)
Quarter: 2014Q4

REPORT INFORMATION
  Report Type: Spontaneous
  Country: US (occurrence: None)
  Receive Date: 20141010
  Receipt Date: 20141010
  Transmission Date: 20150529
  Serious: Yes (Other)
  Sender: FDA-Public Use
  Company Number: 163-POMAL-14063372

PATIENT
  Age: 65 Year
  Sex: Female
  Weight: 70.31 kg

DRUGS (11)
  1. PROZAC [Concomitant]
     Active Substance: FLUOXETINE HYDROCHLORIDE
  2. MULTIVITAMINS [Concomitant]
     Active Substance: VITAMINS
  3. RHODIDA (RHODIOLA ROSEA) [Concomitant]
  4. OXYCODONE [Concomitant]
     Active Substance: OXYCODONE
  5. COQ10 (UBIDECARENONE) [Concomitant]
     Active Substance: UBIDECARENONE
  6. ASA (ACETYLSALIC ACID) [Concomitant]
  7. QUERCETIN [Concomitant]
     Active Substance: QUERCETIN
  8. FISH OIL [Concomitant]
     Active Substance: FISH OIL
  9. POMALYST [Suspect]
     Active Substance: POMALIDOMIDE
     Indication: PLASMA CELL MYELOMA
     Route: 048
     Dates: start: 20140522, end: 2014
  10. KLONOPIN [Concomitant]
     Active Substance: CLONAZEPAM
  11. VITAMIN C [Concomitant]
     Active Substance: ASCORBIC ACID

REACTIONS (3)
  - Hypoaesthesia oral [None]
  - Fatigue [None]
  - Rash [None]

NARRATIVE: CASE EVENT DATE: 20140529
